FAERS Safety Report 19123513 (Version 3)
Quarter: 2021Q3

REPORT INFORMATION
  Report Type: Spontaneous
  Country: JP (occurrence: JP)
  Receive Date: 20210412
  Receipt Date: 20210826
  Transmission Date: 20211014
  Serious: Yes (Hospitalization)
  Sender: FDA-Public Use
  Company Number: JP-LUPIN PHARMACEUTICALS INC.-2021-04533

PATIENT
  Age: 75 Year
  Sex: Male

DRUGS (4)
  1. BENDAMUSTINE [Concomitant]
     Active Substance: BENDAMUSTINE
     Indication: B-CELL LYMPHOMA STAGE IV
     Dosage: 90 MILLIGRAM/SQ. METER, ON DAY 1 AND 2
     Route: 065
  2. ATOVAQUONE. [Suspect]
     Active Substance: ATOVAQUONE
     Indication: PNEUMOCYSTIS JIROVECII PNEUMONIA
     Dosage: 1500 MILLIGRAM, QD
     Route: 048
  3. OBINUTUZUMAB. [Concomitant]
     Active Substance: OBINUTUZUMAB
     Indication: B-CELL LYMPHOMA STAGE IV
     Dosage: 1000 MILLIGRAM
     Route: 065
  4. COTRIMOXAZOLE [Concomitant]
     Active Substance: SULFAMETHOXAZOLE\TRIMETHOPRIM
     Indication: PROPHYLAXIS
     Dosage: 1 DOSAGE FORM, QD (12 TABLETS/DAY; TRIMETHOPRIM 480 MG/DAY)
     Route: 065

REACTIONS (1)
  - Drug ineffective [Unknown]
